FAERS Safety Report 24460155 (Version 1)
Quarter: 2024Q4

REPORT INFORMATION
  Report Type: Report from Study
  Country: CN (occurrence: CN)
  Receive Date: 20241018
  Receipt Date: 20241018
  Transmission Date: 20250115
  Serious: No
  Sender: ROCHE
  Company Number: CN-ROCHE-3570146

PATIENT

DRUGS (5)
  1. RITUXIMAB [Suspect]
     Active Substance: RITUXIMAB
     Indication: Non-Hodgkin^s lymphoma
     Dosage: INTRAVENOUS DRIP ON THE DAY BEFORE THE USE OF CHEMOTHERAPEUTIC DRUGS
     Route: 041
  2. DOXORUBICIN [Suspect]
     Active Substance: DOXORUBICIN
     Indication: Non-Hodgkin^s lymphoma
     Dosage: FOR DAY1
     Route: 041
  3. CYCLOPHOSPHAMIDE [Suspect]
     Active Substance: CYCLOPHOSPHAMIDE
     Indication: Non-Hodgkin^s lymphoma
     Dosage: FOR DAY1
     Route: 041
  4. VINCRISTINE [Suspect]
     Active Substance: VINCRISTINE
     Indication: Non-Hodgkin^s lymphoma
     Dosage: FOR DAY1
     Route: 041
  5. PREDNISONE [Suspect]
     Active Substance: PREDNISONE
     Indication: Non-Hodgkin^s lymphoma
     Dosage: FOR DAY1-5
     Route: 048

REACTIONS (6)
  - Asthenia [Unknown]
  - Alopecia [Unknown]
  - Mouth ulceration [Unknown]
  - Gastrointestinal disorder [Unknown]
  - Rash [Unknown]
  - Myelosuppression [Unknown]
